FAERS Safety Report 15653156 (Version 1)
Quarter: 2018Q4

REPORT INFORMATION
  Report Type: Spontaneous
  Country: US (occurrence: US)
  Receive Date: 20181123
  Receipt Date: 20181123
  Transmission Date: 20190205
  Serious: Yes (Other)
  Sender: FDA-Public Use
  Company Number: US-NOVOPROD-617245

PATIENT
  Age: 57 Year
  Sex: Male

DRUGS (4)
  1. NOVOLOG [Suspect]
     Active Substance: INSULIN ASPART
     Dosage: 9 U, SINGLE BEFORE SUPPER
     Route: 058
     Dates: start: 20180809
  2. LANTUS [Concomitant]
     Active Substance: INSULIN GLARGINE
     Indication: TYPE 1 DIABETES MELLITUS
     Dosage: UNK
     Route: 058
  3. NOVOLOG [Suspect]
     Active Substance: INSULIN ASPART
     Indication: TYPE 1 DIABETES MELLITUS
     Dosage: UNK
     Route: 058
     Dates: start: 20180501
  4. NOVOLOG [Suspect]
     Active Substance: INSULIN ASPART
     Dosage: EXTRA 4 UNITS
     Route: 058
     Dates: start: 20180815

REACTIONS (4)
  - Intentional product misuse [Unknown]
  - Blood glucose decreased [Unknown]
  - Drug effect delayed [Unknown]
  - Blood glucose increased [Unknown]

NARRATIVE: CASE EVENT DATE: 20180501
